FAERS Safety Report 23401370 (Version 1)
Quarter: 2024Q1

REPORT INFORMATION
  Report Type: Report from Study
  Country: US (occurrence: US)
  Receive Date: 20240115
  Receipt Date: 20240115
  Transmission Date: 20240410
  Serious: Yes (Hospitalization, Other)
  Sender: FDA-Public Use
  Company Number: US-GILEAD-2024-0657832

PATIENT
  Age: 30 Year
  Sex: Male

DRUGS (3)
  1. AZTREONAM LYSINE [Suspect]
     Active Substance: AZTREONAM LYSINE
     Indication: Cystic fibrosis
     Dosage: 75 MG, TID
     Route: 055
     Dates: start: 20231129
  2. LEVALBUTEROL [Concomitant]
     Active Substance: LEVALBUTEROL
  3. TOBRAMYCIN [Concomitant]
     Active Substance: TOBRAMYCIN

REACTIONS (4)
  - Cystic fibrosis respiratory infection suppression [Not Recovered/Not Resolved]
  - Productive cough [Not Recovered/Not Resolved]
  - Cough [Not Recovered/Not Resolved]
  - Wheezing [Not Recovered/Not Resolved]

NARRATIVE: CASE EVENT DATE: 20240102
